FAERS Safety Report 23054468 (Version 5)
Quarter: 2023Q4

REPORT INFORMATION
  Report Type: Spontaneous
  Country: US (occurrence: US)
  Receive Date: 20231011
  Receipt Date: 20231218
  Transmission Date: 20240109
  Serious: No
  Sender: FDA-Public Use
  Company Number: US-PFIZER INC-PV202200040047

PATIENT
  Age: 80 Year
  Sex: Male

DRUGS (15)
  1. RETACRIT [Suspect]
     Active Substance: EPOETIN ALFA-EPBX
     Indication: Anaemia of chronic disease
     Dosage: 90000 IU, EVERY 14 DAYS
     Route: 058
  2. RETACRIT [Suspect]
     Active Substance: EPOETIN ALFA-EPBX
     Dosage: 90000 IU INTO SKIN, EVERY 14 DAYS
     Route: 058
  3. RETACRIT [Suspect]
     Active Substance: EPOETIN ALFA-EPBX
     Dosage: 1 ML, EVERY 14 DAYS (TOTAL DOSE IS 90,000 UNITS GIVEN AS 2 X 40,000 UNITS AND 1 X 10,000 UNITS)
     Route: 058
  4. RETACRIT [Suspect]
     Active Substance: EPOETIN ALFA-EPBX
     Dosage: 40000 IU, EVERY 2 WEEKS
     Route: 058
  5. RETACRIT [Suspect]
     Active Substance: EPOETIN ALFA-EPBX
     Dosage: 90000 IU
     Route: 058
  6. RETACRIT [Suspect]
     Active Substance: EPOETIN ALFA-EPBX
     Dosage: 90000 IU, EVERY 14 DAYS (TOTAL DOSE IS 90,000 UNITS GIVEN AS 2 X 40,000 UNITS AND 1 X 10,000 UNITS)
     Route: 058
  7. RETACRIT [Suspect]
     Active Substance: EPOETIN ALFA-EPBX
     Dosage: 2 ML, EVERY 14 DAYS (TOTAL DOSE IS 90,000 UNITS GIVEN AS 2 X 40,000 UNITS AND 1 X 10,000 UNITS)
     Route: 058
  8. RETACRIT [Suspect]
     Active Substance: EPOETIN ALFA-EPBX
     Dosage: 90000 IU, EVERY 14 DAYS (TOTAL DOSE IS 90,000 UNITS GIVEN AS 2 X 40,000 UNITS AND 1 X 10,000 UNITS)
  9. RETACRIT [Suspect]
     Active Substance: EPOETIN ALFA-EPBX
     Dosage: 80000 IU INTO THE SKIN, EVERY 14 DAYS
     Route: 058
  10. RETACRIT [Suspect]
     Active Substance: EPOETIN ALFA-EPBX
     Dosage: 80000 IU INTO THE SKIN, EVERY 14 DAYS
     Route: 058
  11. RETACRIT [Suspect]
     Active Substance: EPOETIN ALFA-EPBX
     Dosage: 90000 IU, EVERY 14 DAYS (TOTAL DOSE IS 90,000 UNITS GIVEN AS 2 X 40,000 UNITS AND 1 X 10,000 UNITS)
     Route: 058
  12. RETACRIT [Suspect]
     Active Substance: EPOETIN ALFA-EPBX
     Dosage: 80000 IU, EVERY 2 WEEKS
     Route: 058
  13. RETACRIT [Suspect]
     Active Substance: EPOETIN ALFA-EPBX
     Dosage: 40000 IU, EVERY 2 WEEKS
     Route: 058
  14. RETACRIT [Suspect]
     Active Substance: EPOETIN ALFA-EPBX
     Dosage: 2 ML, WEEKLY
     Route: 058
  15. RETACRIT [Suspect]
     Active Substance: EPOETIN ALFA-EPBX
     Dosage: 80000 IU, EVERY 2 WEEKS
     Route: 058

REACTIONS (3)
  - Off label use [Unknown]
  - Product prescribing error [Unknown]
  - Asthenia [Unknown]

NARRATIVE: CASE EVENT DATE: 20230214
